FAERS Safety Report 9123816 (Version 2)
Quarter: 2013Q1

REPORT INFORMATION
  Report Type: Spontaneous
  Country: US (occurrence: US)
  Receive Date: 20130116
  Receipt Date: 20130318
  Transmission Date: 20140127
  Serious: Yes (Other)
  Sender: FDA-Public Use
  Company Number: US-ELI_LILLY_AND_COMPANY-US201301001751

PATIENT
  Age: 70 Year
  Sex: Female

DRUGS (9)
  1. FORTEO [Suspect]
     Indication: OSTEOPOROSIS POSTMENOPAUSAL
     Dosage: 20 UG, QD
     Route: 058
     Dates: start: 20121126
  2. FORTEO [Suspect]
     Dosage: UNK, QD
  3. TOPROL [Concomitant]
     Dosage: 25 MG, UNK
  4. CALCIUM CITRATE W/ ERGOCALCIFEROL [Concomitant]
     Dosage: 1, QD
  5. TAMOXIFEN [Concomitant]
     Dosage: 20 MG, UNK
  6. AMITRIPTYLINE [Concomitant]
     Dosage: 10 MG, UNK
  7. FLUCONAZOLE [Concomitant]
     Dosage: 150 MG, UNK
  8. DEXLANSOPRAZOLE [Concomitant]
     Dosage: 60 MG, EACH MORNING
  9. ZANTAC [Concomitant]
     Dosage: 150 MG, UNK

REACTIONS (5)
  - Loss of consciousness [Recovered/Resolved]
  - Lower respiratory tract infection [Unknown]
  - Urinary tract infection [Unknown]
  - Dizziness [Recovered/Resolved]
  - Device misuse [Unknown]
